FAERS Safety Report 24428698 (Version 2)
Quarter: 2024Q4

REPORT INFORMATION
  Report Type: Spontaneous
  Country: SI (occurrence: SI)
  Receive Date: 20241011
  Receipt Date: 20241014
  Transmission Date: 20250115
  Serious: Yes (Hospitalization)
  Sender: MERCK KGAA
  Company Number: None

PATIENT
  Age: 59 Year
  Sex: Female

DRUGS (10)
  1. EUTHYROX [Interacting]
     Active Substance: LEVOTHYROXINE SODIUM
     Indication: Product used for unknown indication
  2. PERJETA [Suspect]
     Active Substance: PERTUZUMAB
     Indication: Adenocarcinoma of colon
     Dosage: DOSE: 840 MG (INTRODUCTION)?EXPIRY DATE: 31-DEC-2025
     Route: 042
     Dates: start: 20240913, end: 20240913
  3. DIPYRONE [Interacting]
     Active Substance: DIPYRONE
     Indication: Product used for unknown indication
  4. ALPRAZOLAM [Interacting]
     Active Substance: ALPRAZOLAM
     Indication: Product used for unknown indication
  5. METFORMIN HYDROCHLORIDE [Interacting]
     Active Substance: METFORMIN HYDROCHLORIDE
     Indication: Product used for unknown indication
  6. .ALPHA.-LIPOIC ACID [Interacting]
     Active Substance: .ALPHA.-LIPOIC ACID
     Indication: Product used for unknown indication
  7. ESOMEPRAZOLE MAGNESIUM [Interacting]
     Active Substance: ESOMEPRAZOLE MAGNESIUM
     Indication: Product used for unknown indication
  8. PREGABALIN [Interacting]
     Active Substance: PREGABALIN
     Indication: Product used for unknown indication
  9. REGLAN [Interacting]
     Active Substance: METOCLOPRAMIDE HYDROCHLORIDE
     Indication: Product used for unknown indication
  10. ACETAMINOPHEN\TRAMADOL HYDROCHLORIDE [Interacting]
     Active Substance: ACETAMINOPHEN\TRAMADOL HYDROCHLORIDE
     Indication: Product used for unknown indication
     Dosage: STRENGTH: 75 MG/650 MG

REACTIONS (1)
  - Anaphylactic reaction [Recovered/Resolved]

NARRATIVE: CASE EVENT DATE: 20240913
